FAERS Safety Report 9744589 (Version 1)
Quarter: 2013Q4

REPORT INFORMATION
  Report Type: Spontaneous
  Country: DE (occurrence: DE)
  Receive Date: 20131210
  Receipt Date: 20131210
  Transmission Date: 20140711
  Serious: Yes (Hospitalization, Congenital Anomaly)
  Sender: FDA-Public Use
  Company Number: DE-ASTRAZENECA-2013SE88538

PATIENT
  Sex: Female
  Weight: 3.2 kg

DRUGS (3)
  1. OMEPRAZOL [Suspect]
     Indication: ABDOMINAL PAIN UPPER
     Route: 064
  2. OMEPRAZOL [Suspect]
     Indication: ABDOMINAL PAIN UPPER
     Route: 064
     Dates: start: 20090205, end: 20090213
  3. FEMIBION [Concomitant]
     Indication: PROPHYLAXIS OF NEURAL TUBE DEFECT
     Route: 064

REACTIONS (4)
  - Coarctation of the aorta [Recovered/Resolved]
  - Bicuspid aortic valve [Not Recovered/Not Resolved]
  - Patent ductus arteriosus [Unknown]
  - Atrial septal defect [Unknown]
